FAERS Safety Report 7315450-3 (Version None)
Quarter: 2011Q1

REPORT INFORMATION
  Report Type: 
  Country: None (occurrence: None)
  Receive Date: 20110225
  Receipt Date: 20110221
  Transmission Date: 20110831
  Serious: Yes (Death, Hospitalization, Other)
  Sender: FDA-Public Use
  Company Number: US-ELI_LILLY_AND_COMPANY-US201101001633

PATIENT
  Age: 90 Year
  Sex: Male

DRUGS (2)
  1. HUMALOG [Suspect]
     Dosage: UNK, UNKNOWN
     Dates: start: 20080101, end: 20101001
  2. PLAVIX [Concomitant]

REACTIONS (2)
  - HYPERGLYCAEMIA [None]
  - BRAIN CANCER METASTATIC [None]
